FAERS Safety Report 4269394-4 (Version None)
Quarter: 2004Q1

REPORT INFORMATION
  Report Type: 
  Country: None (occurrence: None)
  Receive Date: 20040113
  Receipt Date: 20031216
  Transmission Date: 20041129
  Serious: Yes (Hospitalization)
  Sender: FDA-Public Use
  Company Number: WAES 0312FRA00058

PATIENT
  Age: 80 Year
  Sex: Female

DRUGS (1)
  1. COZAAR [Suspect]
     Route: 048
     Dates: start: 19960101, end: 20030101

REACTIONS (1)
  - HEPATITIS CHOLESTATIC [None]
